FAERS Safety Report 11855596 (Version 1)
Quarter: 2015Q4

REPORT INFORMATION
  Report Type: Spontaneous
  Country: US (occurrence: US)
  Receive Date: 20151221
  Receipt Date: 20151221
  Transmission Date: 20160305
  Serious: No
  Sender: FDA-Public Use
  Company Number: US-PERRIGO-14US011472

PATIENT
  Age: 64 Year
  Sex: Female
  Weight: 52.15 kg

DRUGS (1)
  1. BACITRACIN OPHTHALMIC USP 500U/G 0S4 [Suspect]
     Active Substance: BACITRACIN
     Indication: SUPERFICIAL INJURY OF EYE
     Dosage: SMALL AMOUNT, TID
     Route: 047
     Dates: start: 20141101, end: 20141103

REACTIONS (2)
  - Eye pain [Recovered/Resolved]
  - Off label use [Recovered/Resolved]

NARRATIVE: CASE EVENT DATE: 20141101
